FAERS Safety Report 6545942-6 (Version None)
Quarter: 2010Q1

REPORT INFORMATION
  Report Type: 
  Country: None (occurrence: None)
  Receive Date: 20100121
  Receipt Date: 20100113
  Transmission Date: 20100710
  Serious: Yes (Death)
  Sender: FDA-Public Use
  Company Number: US-MERCK-1001USA01527

PATIENT
  Age: 84 Year
  Sex: Female

DRUGS (1)
  1. TIAMATE [Suspect]
     Route: 048

REACTIONS (1)
  - ADVERSE EVENT [None]
